FAERS Safety Report 7469647-2 (Version None)
Quarter: 2011Q2

REPORT INFORMATION
  Report Type: 
  Country: None (occurrence: None)
  Receive Date: 20110506
  Receipt Date: 20110506
  Transmission Date: 20111010
  Serious: Yes (Hospitalization)
  Sender: FDA-Public Use
  Company Number: None

PATIENT
  Sex: Male
  Weight: 81.65 kg

DRUGS (11)
  1. FLUTAMIDE [Suspect]
     Dosage: 75.6 MG
  2. CASODEX [Suspect]
     Dosage: 6000 MG
  3. LISINOPRIL [Concomitant]
  4. CARISOPRODOL [Concomitant]
  5. IBUPROFEN [Concomitant]
  6. CALCIUM WITH VITAMIN D [Concomitant]
  7. MULTI-VITAMIN [Concomitant]
  8. HYDROCODONE BITARTRATE AND ACETAMINOPHEN [Concomitant]
  9. TRIAMTERENE AND HYDROCHLOROTHIAZIDE [Concomitant]
  10. OMEPRAZOLE [Concomitant]
  11. XALATAN [Concomitant]

REACTIONS (2)
  - HYPERLIPIDAEMIA [None]
  - CORONARY ARTERY DISEASE [None]
